FAERS Safety Report 16824521 (Version 1)
Quarter: 2019Q3

REPORT INFORMATION
  Report Type: Spontaneous
  Country: NZ (occurrence: NZ)
  Receive Date: 20190918
  Receipt Date: 20190918
  Transmission Date: 20191005
  Serious: Yes (Death)
  Sender: FDA-Public Use
  Company Number: NZ-JNJFOC-20190915435

PATIENT
  Age: 47 Year
  Sex: Male

DRUGS (5)
  1. LITHIUM CARBONATE. [Concomitant]
     Active Substance: LITHIUM CARBONATE
     Indication: SCHIZOAFFECTIVE DISORDER
     Dosage: UNK, 1/DAY
     Route: 048
     Dates: start: 2009, end: 20161208
  2. ALCOHOL. [Concomitant]
     Active Substance: ALCOHOL
     Indication: PRODUCT USED FOR UNKNOWN INDICATION
     Dosage: UNK, 1/DAY
     Route: 048
     Dates: start: 20161226, end: 20161227
  3. TRAMADOL HYDROCHLORIDE. [Suspect]
     Active Substance: TRAMADOL HYDROCHLORIDE
     Indication: CONTUSION
     Dosage: UNK
     Route: 048
     Dates: start: 20160501, end: 20161226
  4. GARCINIA GUMMI-GUTTA [Concomitant]
     Active Substance: DIETARY SUPPLEMENT
     Indication: OBESITY
     Dosage: 100 MG, 1/DAY
     Route: 048
     Dates: start: 20160501, end: 20161031
  5. METFORMIN [Concomitant]
     Active Substance: METFORMIN HYDROCHLORIDE
     Indication: DIABETES MELLITUS
     Dosage: 500 MG, 1/DAY
     Route: 048
     Dates: end: 20161101

REACTIONS (1)
  - Sudden death [Fatal]

NARRATIVE: CASE EVENT DATE: 20161227
